FAERS Safety Report 9190574 (Version 1)
Quarter: 2013Q1

REPORT INFORMATION
  Report Type: Report from Study
  Country: US (occurrence: US)
  Receive Date: 20130326
  Receipt Date: 20130326
  Transmission Date: 20140127
  Serious: Yes (Other)
  Sender: FDA-Public Use
  Company Number: US-ABBOTT-13P-163-1065380-00

PATIENT
  Age: 61 Year
  Sex: Female

DRUGS (10)
  1. HUMIRA [Suspect]
     Indication: CROHN^S DISEASE
     Dates: start: 201212
  2. LANSOPRAZOLE [Concomitant]
     Indication: DYSPEPSIA
  3. MESALAMINE [Concomitant]
     Indication: INFLAMMATORY BOWEL DISEASE
  4. OXYCODONE [Concomitant]
     Indication: PAIN
     Dosage: 2 TABLETS EVERY 6 HOURS AS NEEDED
  5. ONDANSETRON [Concomitant]
     Indication: NAUSEA
  6. PANTOPRAZOLE [Concomitant]
     Indication: PRODUCT USED FOR UNKNOWN INDICATION
     Dosage: 1 TABLET 30 MINUTES BEFORE EATING
  7. POTASSIUM [Concomitant]
     Indication: PRODUCT USED FOR UNKNOWN INDICATION
     Dosage: 2 PACKETS ONCE A DAY
  8. PREDNISONE [Concomitant]
     Indication: PRODUCT USED FOR UNKNOWN INDICATION
  9. PROPRANOLOL [Concomitant]
     Indication: BLOOD PRESSURE MANAGEMENT
  10. METRONIDAZOLE [Concomitant]
     Indication: CROHN^S DISEASE

REACTIONS (2)
  - Coronary artery occlusion [Recovered/Resolved]
  - Alopecia [Unknown]
